FAERS Safety Report 5474199-2 (Version None)
Quarter: 2007Q3

REPORT INFORMATION
  Report Type: 
  Country: None (occurrence: None)
  Receive Date: 20070928
  Receipt Date: 20070928
  Transmission Date: 20080115
  Serious: Yes (Other)
  Sender: FDA-Public Use
  Company Number: None

PATIENT
  Age: 80 Year
  Sex: Female

DRUGS (6)
  1. MACRODANTIN [Suspect]
     Dosage: 100MG 2X A DAY
     Dates: start: 20051217, end: 20060503
  2. EXELON [Concomitant]
  3. CARDIA XT [Concomitant]
  4. DIGOXIN [Concomitant]
  5. NAMENDA [Concomitant]
  6. RISPERDAL [Concomitant]

REACTIONS (2)
  - HEPATITIS [None]
  - LIVER INJURY [None]
